FAERS Safety Report 19930040 (Version 2)
Quarter: 2021Q4

REPORT INFORMATION
  Report Type: Spontaneous
  Country: IN (occurrence: IN)
  Receive Date: 20211008
  Receipt Date: 20211018
  Transmission Date: 20220303
  Serious: Yes (Hospitalization, Other)
  Sender: FDA-Public Use
  Company Number: IN-IPCA LABORATORIES LIMITED-IPC-2021-IN-001724

PATIENT

DRUGS (2)
  1. WARFARIN [Suspect]
     Active Substance: WARFARIN
     Indication: Deep vein thrombosis
     Dosage: UNK
     Route: 065
  2. ACITORM [Concomitant]
     Indication: Deep vein thrombosis
     Dosage: UNK
     Route: 065

REACTIONS (6)
  - Haematoma [Recovered/Resolved]
  - Sciatic nerve palsy [Recovered/Resolved]
  - Condition aggravated [Recovered/Resolved]
  - International normalised ratio increased [Recovered/Resolved]
  - Hypoaesthesia [Recovered/Resolved]
  - Pain [Recovered/Resolved]
